FAERS Safety Report 17615075 (Version 3)
Quarter: 2020Q2

REPORT INFORMATION
  Report Type: Spontaneous
  Country: US (occurrence: US)
  Receive Date: 20200402
  Receipt Date: 20200409
  Transmission Date: 20200713
  Serious: No
  Sender: FDA-Public Use
  Company Number: US-PFIZER INC-2020135611

PATIENT
  Age: 88 Year
  Sex: Female
  Weight: 73.48 kg

DRUGS (2)
  1. LYRICA [Suspect]
     Active Substance: PREGABALIN
     Indication: HERPES ZOSTER
  2. LYRICA [Suspect]
     Active Substance: PREGABALIN
     Indication: NERVE INJURY
     Dosage: 75 MG, 3X/DAY (75MG 1 CAPSULE BY MOUTH 3 TIMES A DAY)
     Route: 048
     Dates: start: 2018, end: 2020

REACTIONS (7)
  - Diarrhoea [Unknown]
  - Nausea [Unknown]
  - Hyperhidrosis [Unknown]
  - Headache [Unknown]
  - Anxiety [Unknown]
  - Withdrawal syndrome [Unknown]
  - Insomnia [Unknown]
